FAERS Safety Report 5275783-1 (Version None)
Quarter: 2007Q1

REPORT INFORMATION
  Report Type: 
  Country: None (occurrence: None)
  Receive Date: 20070326
  Receipt Date: 20070319
  Transmission Date: 20070707
  Serious: Yes (Disabling)
  Sender: FDA-Public Use
  Company Number: JP-JPN-A200701044

PATIENT
  Age: 68 Year
  Sex: Male

DRUGS (2)
  1. VALTREX [Suspect]
     Route: 048
  2. LOXONIN [Concomitant]
     Route: 048

REACTIONS (2)
  - CEREBRAL INFARCTION [None]
  - DYSLALIA [None]
